FAERS Safety Report 5503842-4 (Version None)
Quarter: 2007Q4

REPORT INFORMATION
  Report Type: 
  Country: None (occurrence: None)
  Receive Date: 20071030
  Receipt Date: 20071015
  Transmission Date: 20080405
  Serious: Yes (Other)
  Sender: FDA-Public Use
  Company Number: 019970

PATIENT
  Age: 70 Year
  Sex: Female

DRUGS (4)
  1. SERTRALINE HCL [Suspect]
     Indication: DEPRESSION
     Dosage: 25 MG, QD
  2. DIGOXIN [Concomitant]
  3. WARFARIN SODIUM [Concomitant]
  4. METOPROLOL TARTRATE [Concomitant]

REACTIONS (4)
  - ABDOMINAL PAIN LOWER [None]
  - DYSURIA [None]
  - URINARY HESITATION [None]
  - URINARY RETENTION [None]
